FAERS Safety Report 7442902 (Version 3)
Quarter: 2020Q3

REPORT INFORMATION
  Report Type: Report from Study
  Country: FR (occurrence: FR)
  Receive Date: 20100628
  Receipt Date: 20100713
  Transmission Date: 20201105
  Serious: Yes (Hospitalization)
  Sender: FDA-Public Use
  Company Number: FR-WYE-H15853210

PATIENT
  Age: 59 Year
  Sex: Female
  Weight: 50 kg

DRUGS (2)
  1. BEVACIZUMAB. [Suspect]
     Active Substance: BEVACIZUMAB
     Indication: RENAL CELL CARCINOMA
     Route: 042
     Dates: start: 20100430, end: 20100531
  2. INTERFERON ALFA NOS [Suspect]
     Active Substance: INTERFERON ALFA-2A OR INTERFERON ALFA-2B
     Indication: RENAL CELL CARCINOMA
     Dosage: 9 MILLION UNIT (MU) THREE TIMES WEEKLY (TIW)
     Route: 058
     Dates: start: 20100430, end: 20100531

REACTIONS (1)
  - General physical condition abnormal [Recovered/Resolved]

NARRATIVE: CASE EVENT DATE: 20100524
